FAERS Safety Report 10495875 (Version 1)
Quarter: 2014Q3

REPORT INFORMATION
  Report Type: Spontaneous
  Country: US (occurrence: None)
  Receive Date: 20140815
  Receipt Date: 20140815
  Transmission Date: 20150326
  Serious: Yes (Other)
  Sender: FDA-Public Use
  Company Number: ADR-2014-00524

PATIENT
  Age: 51 Year
  Sex: Female

DRUGS (4)
  1. MORPHINE INTRATHECAL [Suspect]
     Active Substance: MORPHINE
  2. CLONIDINE. [Suspect]
     Active Substance: CLONIDINE
  3. BACLOFEN INTRATHECAL [Suspect]
     Active Substance: BACLOFEN
     Indication: MUSCLE SPASTICITY
  4. BUPIVACAINE [Suspect]
     Active Substance: BUPIVACAINE

REACTIONS (5)
  - Respiratory depression [None]
  - Vomiting [None]
  - Fall [None]
  - Overdose [None]
  - Underdose [None]
